FAERS Safety Report 26212033 (Version 1)
Quarter: 2025Q4

REPORT INFORMATION
  Report Type: Spontaneous
  Country: RU (occurrence: RU)
  Receive Date: 20251230
  Receipt Date: 20251230
  Transmission Date: 20260118
  Serious: Yes (Death, Other)
  Sender: ROCHE
  Company Number: RU-ROCHE-10000470578

PATIENT
  Age: 59 Year
  Sex: Male

DRUGS (3)
  1. ATEZOLIZUMAB [Suspect]
     Active Substance: ATEZOLIZUMAB
     Indication: Small cell carcinoma
     Dates: start: 20230529, end: 20240821
  2. EPIRUBICIN [Suspect]
     Active Substance: EPIRUBICIN
     Indication: Small cell carcinoma
     Dates: start: 20230529, end: 20240821
  3. CYCLOPHOSPHAMIDE [Suspect]
     Active Substance: CYCLOPHOSPHAMIDE
     Indication: Small cell carcinoma
     Dates: start: 20230529, end: 20240821

REACTIONS (2)
  - Small cell carcinoma [Unknown]
  - Death [Fatal]

NARRATIVE: CASE EVENT DATE: 20240815
